FAERS Safety Report 12172065 (Version 1)
Quarter: 2016Q1

REPORT INFORMATION
  Report Type: Spontaneous
  Country: US (occurrence: None)
  Receive Date: 20160310
  Receipt Date: 20160310
  Transmission Date: 20160526
  Serious: Yes (Other)
  Sender: FDA-Public Use
  Company Number: None

PATIENT
  Age: 59 Year
  Sex: Female
  Weight: 48.4 kg

DRUGS (5)
  1. LORAZEPAM. [Concomitant]
     Active Substance: LORAZEPAM
  2. EVEROLIMUS [Suspect]
     Active Substance: EVEROLIMUS
     Indication: OVARIAN CANCER
     Dates: start: 20150619, end: 20151112
  3. VITAMIN B12 [Concomitant]
     Active Substance: CYANOCOBALAMIN
  4. APIXABAN [Concomitant]
     Active Substance: APIXABAN
  5. LETROZOLE. [Concomitant]
     Active Substance: LETROZOLE

REACTIONS (2)
  - Oedema peripheral [None]
  - Disease progression [None]

NARRATIVE: CASE EVENT DATE: 20151112
